FAERS Safety Report 21723192 (Version 2)
Quarter: 2023Q1

REPORT INFORMATION
  Report Type: Spontaneous
  Country: GB (occurrence: None)
  Receive Date: 20221213
  Receipt Date: 20230321
  Transmission Date: 20230417
  Serious: Yes (Hospitalization, Other)
  Sender: FDA-Public Use
  Company Number: GB-Merck Healthcare KGaA-9371252

PATIENT
  Sex: Female

DRUGS (1)
  1. SAIZEN [Suspect]
     Active Substance: SOMATROPIN
     Indication: Chronic kidney disease
     Dosage: SAIZEN 20MG/2.5ML SOLUTION FOR INJECTION CARTRIDGES
     Route: 058

REACTIONS (3)
  - Renal transplant [Unknown]
  - Infection [Unknown]
  - Product dose omission issue [Unknown]
